FAERS Safety Report 19347660 (Version 1)
Quarter: 2021Q2

REPORT INFORMATION
  Report Type: Spontaneous
  Country: US (occurrence: US)
  Receive Date: 20210528
  Receipt Date: 20210528
  Transmission Date: 20210717
  Serious: No
  Sender: FDA-Public Use
  Company Number: None

PATIENT
  Sex: Female

DRUGS (12)
  1. HYDROCO/APAP [Concomitant]
     Active Substance: ACETAMINOPHEN\HYDROCODONE
  2. MYCOPHENOLAT [Concomitant]
     Active Substance: MYCOPHENOLATE MOFETIL
  3. TRI?LO?SPRINTEC [Concomitant]
     Active Substance: ETHINYL ESTRADIOL\NORGESTIMATE
  4. AMOXICILLIN. [Concomitant]
     Active Substance: AMOXICILLIN
  5. IBUPROFEN. [Concomitant]
     Active Substance: IBUPROFEN
  6. ONDANSETRON [Concomitant]
     Active Substance: ONDANSETRON
  7. PREDNISONE. [Concomitant]
     Active Substance: PREDNISONE
  8. HUMIRA [Suspect]
     Active Substance: ADALIMUMAB
     Indication: IRIDOCYCLITIS
     Route: 058
     Dates: start: 20171025
  9. FAMOTIDINE. [Concomitant]
     Active Substance: FAMOTIDINE
  10. OFLOXACIN. [Concomitant]
     Active Substance: OFLOXACIN
  11. MUPIROCIN. [Concomitant]
     Active Substance: MUPIROCIN
  12. CHOLRHEX GLU [Concomitant]

REACTIONS (2)
  - Infection [None]
  - Intentional dose omission [None]
